FAERS Safety Report 6332328-2 (Version None)
Quarter: 2009Q3

REPORT INFORMATION
  Report Type: 
  Country: None (occurrence: None)
  Receive Date: 20090828
  Receipt Date: 20090825
  Transmission Date: 20100115
  Serious: Yes (Death, Hospitalization)
  Sender: FDA-Public Use
  Company Number: US-BRISTOL-MYERS SQUIBB COMPANY-14685309

PATIENT
  Age: 40 Year
  Sex: Male
  Weight: 70 kg

DRUGS (5)
  1. DASATINIB [Suspect]
     Indication: SARCOMA
     Route: 048
     Dates: start: 20071120, end: 20090624
  2. MORPHINE [Concomitant]
     Dosage: EVERY 12 HOURS
     Route: 048
  3. MEGACE [Concomitant]
     Route: 048
  4. CELEXA [Concomitant]
     Route: 048
  5. AMBIEN [Concomitant]

REACTIONS (2)
  - DYSPNOEA [None]
  - PNEUMONIA [None]
